FAERS Safety Report 10620189 (Version 2)
Quarter: 2015Q1

REPORT INFORMATION
  Report Type: Spontaneous
  Country: US (occurrence: US)
  Receive Date: 20141202
  Receipt Date: 20150209
  Transmission Date: 20150720
  Serious: No
  Sender: FDA-Public Use
  Company Number: US-009507513-1412USA000404

PATIENT
  Age: 18 Year
  Sex: Male

DRUGS (1)
  1. MIRALAX [Suspect]
     Active Substance: POLYETHYLENE GLYCOL 3350
     Indication: GASTROINTESTINAL MOTILITY DISORDER
     Dosage: 51 G, QD
     Route: 048

REACTIONS (7)
  - Drug prescribing error [Unknown]
  - Product taste abnormal [Unknown]
  - Prescribed overdose [Unknown]
  - Drug ineffective [Unknown]
  - Off label use [Unknown]
  - Unevaluable event [Unknown]
  - Abdominal distension [Unknown]

NARRATIVE: CASE EVENT DATE: 201410
